FAERS Safety Report 10555198 (Version 1)
Quarter: 2014Q4

REPORT INFORMATION
  Report Type: Spontaneous
  Country: US (occurrence: US)
  Receive Date: 20141030
  Receipt Date: 20141030
  Transmission Date: 20150529
  Serious: Yes (Death, Other)
  Sender: FDA-Public Use
  Company Number: US-BAYER-2014-159467

PATIENT
  Age: 77 Year
  Sex: Female

DRUGS (1)
  1. BAYER GENUINE ASPIRIN [Suspect]
     Active Substance: ASPIRIN
     Indication: BACK PAIN
     Dosage: UNK, PRN
     Route: 048

REACTIONS (2)
  - Gastric cancer [Fatal]
  - Gastric ulcer [Recovered/Resolved]

NARRATIVE: CASE EVENT DATE: 1975
